APPROVED DRUG PRODUCT: FLECTOR
Active Ingredient: DICLOFENAC EPOLAMINE
Strength: 1.3%
Dosage Form/Route: SYSTEM;TOPICAL
Application: N021234 | Product #001
Applicant: IBSA INSTITUT BIOCHIMIQUE SA
Approved: Jan 31, 2007 | RLD: Yes | RS: Yes | Type: RX